FAERS Safety Report 20417554 (Version 1)
Quarter: 2022Q1

REPORT INFORMATION
  Report Type: Spontaneous
  Country: BR (occurrence: None)
  Receive Date: 20220202
  Receipt Date: 20220202
  Transmission Date: 20220423
  Serious: Yes (Other)
  Sender: FDA-Public Use
  Company Number: 2022A049708

PATIENT
  Age: 25 Year
  Sex: Male

DRUGS (1)
  1. SYMBICORT [Suspect]
     Active Substance: BUDESONIDE\FORMOTEROL FUMARATE DIHYDRATE
     Indication: Asthma
     Dosage: 4 ASPIRATIONS, 6/200UNITS TWO IN THE MORNING TWO IN THE NIGHT TWO JETS
     Route: 055
     Dates: start: 2019

REACTIONS (3)
  - Asthmatic crisis [Unknown]
  - Influenza [Unknown]
  - Off label use [Not Recovered/Not Resolved]
